FAERS Safety Report 8904129 (Version 1)
Quarter: 2012Q4

REPORT INFORMATION
  Report Type: 
  Country: GB (occurrence: GB)
  Receive Date: 20121112
  Receipt Date: 20121112
  Transmission Date: 20130627
  Serious: Yes (Other)
  Sender: FDA-Public Use
  Company Number: GB-BAYER-2012-117522

PATIENT
  Sex: Male

DRUGS (4)
  1. ACETYLSALICYLIC ACID (} 100 MG) [Suspect]
     Dosage: 300 mg, UNK
  2. CLOPIDOGREL [Suspect]
     Dosage: 600 mg, UNK
  3. HEPARIN [Suspect]
  4. REOPRO [Suspect]
     Dosage: 5000 iu, UNK

REACTIONS (1)
  - Thrombosis in device [Unknown]
